FAERS Safety Report 5280011-7 (Version None)
Quarter: 2007Q1

REPORT INFORMATION
  Report Type: 
  Country: None (occurrence: None)
  Receive Date: 20061219
  Receipt Date: 20060308
  Transmission Date: 20070707
  Serious: Yes (Other)
  Sender: FDA-Public Use
  Company Number: 2006UW03911

PATIENT
  Age: 52 Year
  Sex: Male
  Weight: 117.93 kg

DRUGS (4)
  1. CRESTOR [Suspect]
     Indication: HYPERCHOLESTEROLAEMIA
     Dosage: 10 MG QD PO
     Route: 048
     Dates: start: 20060101
  2. LISINOPRIL [Concomitant]
  3. GLUCOPHAGE [Concomitant]
  4. PREVACID [Concomitant]

REACTIONS (1)
  - ARTHRITIS [None]
